FAERS Safety Report 9359909 (Version 2)
Quarter: 2013Q3

REPORT INFORMATION
  Report Type: Spontaneous
  Country: IT (occurrence: IT)
  Receive Date: 20130621
  Receipt Date: 20130802
  Transmission Date: 20140515
  Serious: Yes (Hospitalization)
  Sender: FDA-Public Use
  Company Number: IT-ABBOTT-13X-083-1107816-00

PATIENT
  Age: 41 Year
  Sex: Male

DRUGS (1)
  1. DEPAKINE [Suspect]
     Indication: DEPRESSION
     Route: 048
     Dates: start: 20130318, end: 20130330

REACTIONS (3)
  - Hepatocellular injury [Recovering/Resolving]
  - Hepatitis acute [Recovering/Resolving]
  - Jaundice hepatocellular [Recovering/Resolving]
